FAERS Safety Report 9401457 (Version 1)
Quarter: 2013Q3

REPORT INFORMATION
  Report Type: Report from Study
  Country: DE (occurrence: DE)
  Receive Date: 20130716
  Receipt Date: 20130716
  Transmission Date: 20140515
  Serious: Yes (Hospitalization)
  Sender: FDA-Public Use
  Company Number: DE-ROCHE-730885

PATIENT
  Age: 55 Year
  Sex: Male
  Weight: 93 kg

DRUGS (5)
  1. PEG-INTERFERON ALFA 2A [Suspect]
     Indication: CHRONIC HEPATITIS C
     Route: 058
     Dates: start: 20100618, end: 20100903
  2. RIBAVIRIN [Suspect]
     Indication: CHRONIC HEPATITIS C
     Route: 048
     Dates: start: 20100618, end: 20100823
  3. LEVODOPA [Concomitant]
     Indication: RESTLESS LEGS SYNDROME
     Route: 048
  4. RAMIPRIL [Concomitant]
     Indication: HYPERTENSION
     Dosage: PERMANENT MEDICATION
     Route: 048
  5. LYRICA [Concomitant]
     Indication: PARAESTHESIA
     Route: 048
     Dates: start: 20100823, end: 20100831

REACTIONS (1)
  - Muscle oedema [Recovered/Resolved]
